FAERS Safety Report 4383367-2 (Version None)
Quarter: 2004Q2

REPORT INFORMATION
  Report Type: 
  Country: None (occurrence: None)
  Receive Date: 20040618
  Receipt Date: 20040608
  Transmission Date: 20050107
  Serious: Yes (Hospitalization)
  Sender: FDA-Public Use
  Company Number: HQWYE466815APR04

PATIENT
  Age: 40 Year
  Sex: Male
  Weight: 79.45 kg

DRUGS (11)
  1. RAPAMUNE [Suspect]
     Indication: PROPHYLAXIS AGAINST TRANSPLANT REJECTION
     Dosage: SEE IMAGE
     Dates: end: 20040405
  2. RAPAMUNE [Suspect]
     Indication: PROPHYLAXIS AGAINST TRANSPLANT REJECTION
     Dosage: SEE IMAGE
     Dates: start: 20020415
  3. PROGRAF [Concomitant]
  4. PREDNISONE TAB [Concomitant]
  5. TOPROL-XL [Concomitant]
  6. MINOXIDIL [Concomitant]
  7. BACTRIM [Concomitant]
  8. PEPCID [Concomitant]
  9. LASIX [Concomitant]
  10. RESTORIL [Concomitant]
  11. MULTIVITAMINS (ASCORBIC ACID/ERGOCALCIFEROL/FOLIC ACID/NICOTINAMIDE/PA [Concomitant]

REACTIONS (9)
  - ALVEOLAR PROTEINOSIS [None]
  - BACTERIAL ANTIGEN POSITIVE [None]
  - DILATATION ATRIAL [None]
  - PERICARDIAL EFFUSION [None]
  - PULMONARY ALVEOLAR HAEMORRHAGE [None]
  - PULMONARY OEDEMA [None]
  - PULMONARY VALVE INCOMPETENCE [None]
  - VENTRICULAR HYPERTROPHY [None]
  - WHITE BLOOD CELL COUNT INCREASED [None]
